FAERS Safety Report 9393915 (Version 1)
Quarter: 2013Q3

REPORT INFORMATION
  Report Type: Spontaneous
  Country: FR (occurrence: FR)
  Receive Date: 20130710
  Receipt Date: 20130710
  Transmission Date: 20140515
  Serious: Yes (Disabling)
  Sender: FDA-Public Use
  Company Number: FR-009507513-1307FRA000450

PATIENT
  Age: 47 Year
  Sex: Female

DRUGS (2)
  1. FOSAVANCE [Suspect]
     Indication: OSTEOPOROSIS
     Dosage: UNK
     Route: 048
     Dates: start: 2006, end: 20121001
  2. BIRODOGYL [Concomitant]
     Indication: TOOTH ABSCESS
     Dosage: UNK
     Route: 048
     Dates: start: 20120924

REACTIONS (1)
  - Osteonecrosis [Recovering/Resolving]
